FAERS Safety Report 20523187 (Version 1)
Quarter: 2022Q1

REPORT INFORMATION
  Report Type: Spontaneous
  Country: RO (occurrence: RO)
  Receive Date: 20220227
  Receipt Date: 20220227
  Transmission Date: 20220423
  Serious: Yes (Other)
  Sender: FDA-Public Use
  Company Number: RO-TEVA-2022-RO-2010869

PATIENT
  Sex: Female

DRUGS (10)
  1. MONTELUKAST [Suspect]
     Active Substance: MONTELUKAST SODIUM
     Indication: Asthma
     Dosage: 10 MILLIGRAM DAILY; MONTELUKAST ACTAVIS 10 MG
     Route: 048
     Dates: start: 202112
  2. XYZAL [Concomitant]
     Active Substance: LEVOCETIRIZINE DIHYDROCHLORIDE
     Route: 065
  3. NASONEX [Concomitant]
     Active Substance: MOMETASONE FUROATE
     Route: 065
  4. FOSTER [Concomitant]
     Active Substance: BECLOMETHASONE\FORMOTEROL
     Route: 065
  5. VENTOLIN [Concomitant]
     Active Substance: ALBUTEROL SULFATE
     Route: 065
  6. KETOPROFEN [Concomitant]
     Active Substance: KETOPROFEN
     Indication: Pain
     Route: 065
  7. IBUPROFEN [Concomitant]
     Active Substance: IBUPROFEN
     Indication: Pain
     Route: 065
  8. ADAGIN [Concomitant]
     Indication: Pain
     Route: 065
  9. DICARBOCALM [Concomitant]
     Indication: Gastrooesophageal reflux disease
     Route: 065
  10. Rennie [Concomitant]
     Indication: Gastrooesophageal reflux disease
     Route: 065

REACTIONS (6)
  - Haemorrhage [Recovered/Resolved]
  - Product dose omission in error [Unknown]
  - Insomnia [Not Recovered/Not Resolved]
  - Poor quality sleep [Not Recovered/Not Resolved]
  - Disturbance in attention [Not Recovered/Not Resolved]
  - Amnesia [Not Recovered/Not Resolved]

NARRATIVE: CASE EVENT DATE: 20210101
